FAERS Safety Report 18468917 (Version 1)
Quarter: 2020Q4

REPORT INFORMATION
  Report Type: Spontaneous
  Country: US (occurrence: US)
  Receive Date: 20201105
  Receipt Date: 20201105
  Transmission Date: 20210114
  Serious: No
  Sender: FDA-Public Use
  Company Number: US-NEPHRON PHARMACEUTICALS CORPORATION-2093629

PATIENT
  Sex: Male
  Weight: 71.36 kg

DRUGS (2)
  1. MONTELUKAST [Concomitant]
     Active Substance: MONTELUKAST SODIUM
     Route: 048
  2. ALBUTEROL SULFATE INHALATION SOLUTION, 0.5% [Suspect]
     Active Substance: ALBUTEROL SULFATE
     Indication: CHRONIC OBSTRUCTIVE PULMONARY DISEASE
     Route: 055

REACTIONS (3)
  - Dizziness [Not Recovered/Not Resolved]
  - Paraesthesia [Not Recovered/Not Resolved]
  - Vision blurred [Not Recovered/Not Resolved]
